FAERS Safety Report 15449873 (Version 1)
Quarter: 2018Q4

REPORT INFORMATION
  Report Type: Spontaneous
  Country: NL (occurrence: NL)
  Receive Date: 20181001
  Receipt Date: 20181001
  Transmission Date: 20190204
  Serious: Yes (Death, Other)
  Sender: FDA-Public Use
  Company Number: NL-BION-007443

PATIENT
  Age: 65 Year
  Sex: Male

DRUGS (2)
  1. VALPROIC ACID. [Suspect]
     Active Substance: VALPROIC ACID
     Indication: BIPOLAR I DISORDER
     Dosage: 2500 MG INCREASED TO 3000 MG
  2. OLANZAPINE. [Concomitant]
     Active Substance: OLANZAPINE
     Indication: BIPOLAR I DISORDER
     Dosage: 10 MG.

REACTIONS (7)
  - Micturition disorder [Unknown]
  - Pulmonary embolism [Fatal]
  - Toxicity to various agents [Fatal]
  - Facial paralysis [Unknown]
  - Dysphagia [Unknown]
  - Delirium [Unknown]
  - Neurodegenerative disorder [Unknown]
